FAERS Safety Report 7050958-X (Version None)
Quarter: 2010Q4

REPORT INFORMATION
  Report Type: 
  Country: None (occurrence: None)
  Receive Date: 20101019
  Receipt Date: 20101008
  Transmission Date: 20110411
  Serious: Yes (Other)
  Sender: FDA-Public Use
  Company Number: BR-US-EMD SERONO, INC.-7021678

PATIENT
  Sex: Female

DRUGS (1)
  1. REBIF [Suspect]
     Indication: RELAPSING-REMITTING MULTIPLE SCLEROSIS
     Route: 058
     Dates: start: 20040501

REACTIONS (4)
  - INJECTION SITE ERYTHEMA [None]
  - LIMB INJURY [None]
  - MENINGIOMA BENIGN [None]
  - MUSCULAR WEAKNESS [None]
